FAERS Safety Report 17131270 (Version 2)
Quarter: 2019Q4

REPORT INFORMATION
  Report Type: Spontaneous
  Country: US (occurrence: US)
  Receive Date: 20191209
  Receipt Date: 20191226
  Transmission Date: 20200122
  Serious: Yes (Other)
  Sender: FDA-Public Use
  Company Number: US-AMGEN-USASP2019203996

PATIENT
  Age: 86 Year
  Sex: Female
  Weight: 53.52 kg

DRUGS (6)
  1. PROLIA [Suspect]
     Active Substance: DENOSUMAB
     Indication: OSTEOPOROSIS POSTMENOPAUSAL
     Dosage: 60 MILLIGRAM, Q6MO
     Route: 058
     Dates: start: 201603
  2. PLAVIX [Concomitant]
     Active Substance: CLOPIDOGREL BISULFATE
     Dosage: 75 MILLIGRAM, QD
     Route: 048
  3. LIPITOR [Concomitant]
     Active Substance: ATORVASTATIN CALCIUM
     Dosage: 20 MILLIGRAM, QD
     Route: 048
  4. LOSARTAN POTASSIUM. [Concomitant]
     Active Substance: LOSARTAN POTASSIUM
     Dosage: 50 MILLIGRAM, QD
     Route: 048
  5. OXYBUTYNIN CHLORIDE. [Concomitant]
     Active Substance: OXYBUTYNIN CHLORIDE
     Dosage: 5 MILLIGRAM, BID
     Route: 048
  6. GLUCOPHAGE XR [Concomitant]
     Active Substance: METFORMIN HYDROCHLORIDE
     Dosage: 500 MILLIGRAM, QD
     Route: 048

REACTIONS (1)
  - Herpes zoster [Recovered/Resolved]

NARRATIVE: CASE EVENT DATE: 20191202
